FAERS Safety Report 24867334 (Version 1)
Quarter: 2025Q1

REPORT INFORMATION
  Report Type: Spontaneous
  Country: US (occurrence: None)
  Receive Date: 20250117
  Receipt Date: 20250117
  Transmission Date: 20250409
  Serious: No
  Sender: FDA-CTU
  Company Number: None

PATIENT
  Age: 81 Year
  Sex: Male

DRUGS (1)
  1. LENALIDOMIDE [Suspect]
     Active Substance: LENALIDOMIDE
     Indication: Marginal zone lymphoma
     Dosage: FREQUENCY : DAILY;?
     Route: 048
     Dates: start: 20240812

REACTIONS (5)
  - Fatigue [None]
  - Asthenia [None]
  - Bacteraemia [None]
  - Generalised oedema [None]
  - Deep vein thrombosis [None]

NARRATIVE: CASE EVENT DATE: 20241224
